FAERS Safety Report 6569076-X (Version None)
Quarter: 2010Q1

REPORT INFORMATION
  Report Type: 
  Country: None (occurrence: None)
  Receive Date: 20100203
  Receipt Date: 20100129
  Transmission Date: 20100710
  Serious: Yes (Other)
  Sender: FDA-Public Use
  Company Number: US-PFIZER INC-2010012945

PATIENT
  Sex: Male
  Weight: 148.75 kg

DRUGS (1)
  1. VIAGRA [Suspect]
     Dosage: UNK
     Dates: start: 20100101

REACTIONS (3)
  - HIV ANTIBODY POSITIVE [None]
  - PENILE SIZE REDUCED [None]
  - PENIS DISORDER [None]
